FAERS Safety Report 7688031-X (Version None)
Quarter: 2011Q3

REPORT INFORMATION
  Report Type: 
  Country: None (occurrence: None)
  Receive Date: 20110817
  Receipt Date: 20110815
  Transmission Date: 20111222
  Serious: Yes (Other)
  Sender: FDA-Public Use
  Company Number: US-PFIZER INC-2011186639

PATIENT
  Sex: Female
  Weight: 54.422 kg

DRUGS (1)
  1. CHILDREN'S ADVIL [Suspect]
     Indication: HEADACHE
     Dosage: UNK
     Route: 048
     Dates: start: 20110814

REACTIONS (4)
  - HYPOAESTHESIA ORAL [None]
  - SWELLING FACE [None]
  - EYE SWELLING [None]
  - LIP SWELLING [None]
